FAERS Safety Report 13950028 (Version 1)
Quarter: 2017Q3

REPORT INFORMATION
  Report Type: Spontaneous
  Country: US (occurrence: US)
  Receive Date: 20170908
  Receipt Date: 20170908
  Transmission Date: 20171128
  Serious: No
  Sender: FDA-Public Use
  Company Number: US-ROCHE-1135574

PATIENT
  Sex: Male

DRUGS (3)
  1. PROCARDIA XL [Concomitant]
     Active Substance: NIFEDIPINE
     Route: 048
  2. RITUXAN [Suspect]
     Active Substance: RITUXIMAB
     Indication: CHRONIC LYMPHOCYTIC LEUKAEMIA
     Dosage: 770 MG
     Route: 065
     Dates: start: 20000908
  3. PRAVACOL [Concomitant]
     Active Substance: PRAVASTATIN SODIUM
     Route: 048

REACTIONS (1)
  - Muscular weakness [Unknown]
